FAERS Safety Report 17806988 (Version 1)
Quarter: 2020Q2

REPORT INFORMATION
  Report Type: Spontaneous
  Country: US (occurrence: US)
  Receive Date: 20200520
  Receipt Date: 20200520
  Transmission Date: 20200714
  Serious: Yes (Other)
  Sender: FDA-Public Use
  Company Number: US-MYLANLABS-2020M1048590

PATIENT
  Age: 52 Year
  Sex: Female
  Weight: 79.37 kg

DRUGS (2)
  1. ATENOLOL TABLETS, USP [Suspect]
     Active Substance: ATENOLOL
     Dosage: 100 MILLIGRAM, BID
     Dates: end: 20190416
  2. ATENOLOL TABLETS, USP [Suspect]
     Active Substance: ATENOLOL
     Indication: HYPERTENSION
     Dosage: 50 MILLIGRAM, BID

REACTIONS (10)
  - Tachycardia [Recovered/Resolved]
  - Weight increased [Unknown]
  - Chest pain [Recovered/Resolved]
  - Withdrawal syndrome [Recovered/Resolved]
  - Palpitations [Recovered/Resolved]
  - Corrective lens user [Recovered/Resolved]
  - Hypoaesthesia [Recovered/Resolved]
  - Respiratory rate decreased [Recovered/Resolved]
  - Aggression [Recovered/Resolved]
  - Emotional disorder [Recovered/Resolved]

NARRATIVE: CASE EVENT DATE: 20190416
